FAERS Safety Report 4740081-9 (Version None)
Quarter: 2005Q3

REPORT INFORMATION
  Report Type: 
  Country: None (occurrence: None)
  Receive Date: 20050810
  Receipt Date: 20040402
  Transmission Date: 20060218
  Serious: No
  Sender: FDA-Public Use
  Company Number: US-GLAXOSMITHKLINE-A0506334A

PATIENT
  Sex: Female

DRUGS (5)
  1. PAXIL [Suspect]
     Indication: DRUG USE FOR UNKNOWN INDICATION
     Route: 048
  2. ZANAFLEX [Concomitant]
  3. FENTANYL [Concomitant]
  4. ZESTRIL [Concomitant]
  5. ATENOLOL [Concomitant]

REACTIONS (1)
  - DRUG WITHDRAWAL SYNDROME [None]
